FAERS Safety Report 5557062-8 (Version None)
Quarter: 2007Q4

REPORT INFORMATION
  Report Type: 
  Country: None (occurrence: None)
  Receive Date: 20071214
  Receipt Date: 20071129
  Transmission Date: 20080405
  Serious: Yes (Death, Other)
  Sender: FDA-Public Use
  Company Number: FR-BAYER-200717275GPV

PATIENT
  Age: 73 Year
  Sex: Male

DRUGS (7)
  1. CIFLOX (CIPROFLOXACIN) [Suspect]
     Indication: PROSTATITIS
     Dosage: TOTAL DAILY DOSE: 500 MG  UNIT DOSE: 500 MG
     Route: 048
     Dates: start: 20070922, end: 20071007
  2. ROCEPHIN [Suspect]
     Indication: PROSTATITIS
     Dosage: TOTAL DAILY DOSE: 2 G  UNIT DOSE: 2 G
     Route: 042
     Dates: start: 20070922, end: 20071007
  3. PREVISCAN (FLUINDIONE) [Concomitant]
     Indication: DRUG USE FOR UNKNOWN INDICATION
     Route: 065
     Dates: end: 20071015
  4. LASIX [Concomitant]
     Indication: DRUG USE FOR UNKNOWN INDICATION
     Route: 065
     Dates: end: 20071015
  5. ISOPTIN [Concomitant]
     Indication: DRUG USE FOR UNKNOWN INDICATION
     Route: 065
     Dates: end: 20071015
  6. ALLOPURINOL [Concomitant]
     Indication: DRUG USE FOR UNKNOWN INDICATION
     Route: 065
     Dates: end: 20071015
  7. XATRAL (ALFUZOSINE) [Concomitant]
     Indication: DRUG USE FOR UNKNOWN INDICATION
     Route: 065
     Dates: end: 20071015

REACTIONS (14)
  - ANURIA [None]
  - C-REACTIVE PROTEIN INCREASED [None]
  - CARDIAC ARREST [None]
  - DISSOCIATION [None]
  - EYE DISORDER [None]
  - GENITAL LESION [None]
  - HAEMODYNAMIC INSTABILITY [None]
  - HYPOTHERMIA [None]
  - LEUKOCYTOSIS [None]
  - METABOLIC ACIDOSIS [None]
  - RASH GENERALISED [None]
  - SEPSIS [None]
  - STAPHYLOCOCCAL BACTERAEMIA [None]
  - TOXIC EPIDERMAL NECROLYSIS [None]
